FAERS Safety Report 9597490 (Version 1)
Quarter: 2013Q4

REPORT INFORMATION
  Report Type: Spontaneous
  Country: US (occurrence: US)
  Receive Date: 20131004
  Receipt Date: 20131004
  Transmission Date: 20140711
  Serious: No
  Sender: FDA-Public Use
  Company Number: US-AMGEN-USASP2013019626

PATIENT
  Age: 34 Year
  Sex: Male

DRUGS (4)
  1. ENBREL [Suspect]
     Indication: RHEUMATOID ARTHRITIS
     Dosage: UNK UNK, QWK
     Route: 058
     Dates: end: 201204
  2. LISINOPRIL AND HYDROCHLOROTHIAZIDE [Concomitant]
     Dosage: UNK
  3. ARAVA [Concomitant]
     Dosage: UNK
  4. IRON [Concomitant]
     Dosage: UNK

REACTIONS (3)
  - Drug hypersensitivity [Recovered/Resolved]
  - Injection site urticaria [Recovered/Resolved]
  - Injection site reaction [Recovered/Resolved]
